FAERS Safety Report 16817109 (Version 1)
Quarter: 2019Q3

REPORT INFORMATION
  Report Type: Spontaneous
  Country: US (occurrence: US)
  Receive Date: 20190917
  Receipt Date: 20190917
  Transmission Date: 20191005
  Serious: No
  Sender: FDA-Public Use
  Company Number: US-CELGENEUS-USA-20190902959

PATIENT
  Age: 59 Year
  Sex: Female

DRUGS (2)
  1. THALOMID [Suspect]
     Active Substance: THALIDOMIDE
     Indication: PLASMA CELL MYELOMA
     Dosage: 50 MILLIGRAM
     Route: 048
     Dates: start: 20190625
  2. THALOMID [Suspect]
     Active Substance: THALIDOMIDE
     Indication: SARCOIDOSIS
     Dosage: 200 MILLIGRAM
     Route: 048
     Dates: start: 201907

REACTIONS (4)
  - Paraesthesia oral [Unknown]
  - Tremor [Unknown]
  - Paraesthesia [Unknown]
  - Diarrhoea [Unknown]

NARRATIVE: CASE EVENT DATE: 20190820
